FAERS Safety Report 6890594-9 (Version None)
Quarter: 2010Q3

REPORT INFORMATION
  Report Type: 
  Country: None (occurrence: None)
  Receive Date: 20100731
  Receipt Date: 20081231
  Transmission Date: 20110219
  Serious: Yes (Other)
  Sender: FDA-Public Use
  Company Number: US-PFIZER INC-2009150376

PATIENT
  Sex: Male
  Weight: 66.667 kg

DRUGS (6)
  1. LIPITOR [Suspect]
     Indication: BLOOD CHOLESTEROL INCREASED
  2. METFORMIN HYDROCHLORIDE [Concomitant]
     Dosage: UNK
  3. ACTOS [Concomitant]
     Dosage: UNK
  4. PLAVIX [Concomitant]
     Dosage: UNK
  5. ASPIRIN [Concomitant]
     Dosage: UNK
  6. PROSCAR [Concomitant]
     Dosage: UNK

REACTIONS (1)
  - AMNESIA [None]
